FAERS Safety Report 16961593 (Version 2)
Quarter: 2022Q2

REPORT INFORMATION
  Report Type: Report from Study
  Country: CA (occurrence: CA)
  Receive Date: 20191025
  Receipt Date: 20220427
  Transmission Date: 20220721
  Serious: Yes (Other)
  Sender: FDA-Public Use
  Company Number: CA-PFIZER INC-2019458081

PATIENT
  Age: 59 Year
  Sex: Female

DRUGS (26)
  1. METHOTREXATE SODIUM [Suspect]
     Active Substance: METHOTREXATE SODIUM
     Dosage: 15 MG, WEEKLY
     Route: 065
  2. COSENTYX [Suspect]
     Active Substance: SECUKINUMAB
     Indication: Psoriatic arthropathy
     Dosage: 300 MG, WEEKLY
     Route: 058
  3. COSENTYX [Suspect]
     Active Substance: SECUKINUMAB
     Indication: Psoriasis
     Dosage: 300 MG
  4. COSENTYX [Suspect]
     Active Substance: SECUKINUMAB
     Dosage: UNK
  5. COSENTYX [Suspect]
     Active Substance: SECUKINUMAB
     Dosage: 300 MG, MONTHLY
  6. COSENTYX [Suspect]
     Active Substance: SECUKINUMAB
     Indication: Psoriatic arthropathy
     Dosage: 450 MG, 1 EVERY 1 MONTHS
     Route: 065
  7. COSENTYX [Suspect]
     Active Substance: SECUKINUMAB
     Indication: Psoriasis
     Dosage: 300 MG, 1 EVERY 1 MONTHS
     Route: 058
  8. COSENTYX [Suspect]
     Active Substance: SECUKINUMAB
     Dosage: UNK
     Route: 065
  9. COSENTYX [Suspect]
     Active Substance: SECUKINUMAB
     Dosage: 300 MG, 1 EVERY 1 WEEKS
     Route: 058
  10. COSENTYX [Suspect]
     Active Substance: SECUKINUMAB
     Dosage: 300 MG, 1 EVERY 1 MONTHS
     Route: 058
  11. COSENTYX [Suspect]
     Active Substance: SECUKINUMAB
     Dosage: 300 MG
     Route: 058
  12. COSENTYX [Suspect]
     Active Substance: SECUKINUMAB
     Dosage: 300 MG, 1 EVERY 1 MONTHS
     Route: 058
  13. LEFLUNOMIDE [Suspect]
     Active Substance: LEFLUNOMIDE
     Dosage: UNK
  14. LEFLUNOMIDE [Suspect]
     Active Substance: LEFLUNOMIDE
     Route: 065
  15. OXYCODONE HYDROCHLORIDE [Suspect]
     Active Substance: OXYCODONE HYDROCHLORIDE
     Dosage: 60 MG, 4X/DAY
  16. ENBREL [Concomitant]
     Active Substance: ETANERCEPT
     Dosage: UNK
  17. HUMIRA [Concomitant]
     Active Substance: ADALIMUMAB
     Dosage: UNK
  18. IBUPROFEN [Concomitant]
     Active Substance: IBUPROFEN
     Dosage: UNK
  19. CANNABIS SATIVA SUBSP. INDICA TOP [Concomitant]
     Active Substance: CANNABIS SATIVA SUBSP. INDICA TOP
     Dosage: UNK
  20. METHADONE [Concomitant]
     Active Substance: METHADONE HYDROCHLORIDE
     Dosage: 30 MG, UNK
  21. NAPROXEN [Concomitant]
     Active Substance: NAPROXEN
     Dosage: UNK
  22. OTEZLA [Concomitant]
     Active Substance: APREMILAST
     Dosage: UNK
  23. PREDNISONE [Concomitant]
     Active Substance: PREDNISONE
     Dosage: UNK
  24. REMICADE [Concomitant]
     Active Substance: INFLIXIMAB
     Dosage: UNK
  25. SULFASALAZINE [Concomitant]
     Active Substance: SULFASALAZINE
     Dosage: UNK
  26. CANNABIS SATIVA FLOWERING TOP [Concomitant]
     Active Substance: CANNABIS SATIVA FLOWERING TOP
     Route: 065

REACTIONS (13)
  - Bladder disorder [Recovered/Resolved]
  - Blindness transient [Recovered/Resolved]
  - Cellulitis [Recovered/Resolved]
  - Halo vision [Recovered/Resolved]
  - Headache [Recovered/Resolved]
  - Migraine [Recovered/Resolved]
  - Nausea [Recovered/Resolved]
  - Pharyngitis streptococcal [Recovered/Resolved]
  - Psoriasis [Recovered/Resolved]
  - Skin discolouration [Recovered/Resolved]
  - Vertigo [Recovered/Resolved]
  - Incorrect dose administered [Recovered/Resolved]
  - Joint swelling [Recovered/Resolved]
